FAERS Safety Report 7015006-6 (Version None)
Quarter: 2010Q3

REPORT INFORMATION
  Report Type: 
  Country: None (occurrence: None)
  Receive Date: 20100927
  Receipt Date: 20091123
  Transmission Date: 20110219
  Serious: No
  Sender: FDA-Public Use
  Company Number: US-ASTRAZENECA-2009SE14069

PATIENT
  Sex: Female
  Weight: 89.8 kg

DRUGS (3)
  1. ARIMIDEX [Suspect]
     Route: 048
  2. LEXAPRO [Concomitant]
  3. XANEX [Concomitant]

REACTIONS (5)
  - APHONIA [None]
  - DRY THROAT [None]
  - LIP SWELLING [None]
  - SWOLLEN TONGUE [None]
  - TONGUE DISORDER [None]
